FAERS Safety Report 17517291 (Version 5)
Quarter: 2020Q2

REPORT INFORMATION
  Report Type: Report from Study
  Country: US (occurrence: US)
  Receive Date: 20200309
  Receipt Date: 20200612
  Transmission Date: 20200713
  Serious: Yes (Hospitalization)
  Sender: FDA-Public Use
  Company Number: US-JNJFOC-20200242060

PATIENT
  Age: 25 Year
  Sex: Female
  Weight: 68.1 kg

DRUGS (4)
  1. STELARA [Concomitant]
     Active Substance: USTEKINUMAB
     Route: 065
  2. INFLIXIMAB, RECOMBINANT [Suspect]
     Active Substance: INFLIXIMAB
     Indication: INFLAMMATORY BOWEL DISEASE
     Route: 042
     Dates: start: 20061020, end: 20120604
  3. PREDNISONE. [Concomitant]
     Active Substance: PREDNISONE
  4. 6-MERCAPTOPURINE MONOHYDRATE [Concomitant]
     Active Substance: MERCAPTOPURINE

REACTIONS (2)
  - Fistula [Recovered/Resolved]
  - Stoma site abscess [Recovered/Resolved]

NARRATIVE: CASE EVENT DATE: 20200216
